FAERS Safety Report 19931433 (Version 1)
Quarter: 2021Q4

REPORT INFORMATION
  Report Type: Spontaneous
  Country: US (occurrence: US)
  Receive Date: 20211008
  Receipt Date: 20211008
  Transmission Date: 20220304
  Serious: No
  Sender: FDA-Public Use
  Company Number: US-AVEO ONCOLOGY-2021-AVEO-US003563

PATIENT

DRUGS (8)
  1. FOTIVDA [Suspect]
     Active Substance: TIVOZANIB HYDROCHLORIDE
     Indication: Renal cell carcinoma
     Dosage: 1.34 MG, DAILY FOR 21 DAYS, THEN 7 DAYS OFF
     Route: 048
  2. VITAMIN D [Concomitant]
     Active Substance: VITAMIN D NOS
  3. SYNTHROID [Concomitant]
     Active Substance: LEVOTHYROXINE SODIUM
  4. KLOR-CON [Concomitant]
     Active Substance: POTASSIUM CHLORIDE
  5. LISINOPRIL [Concomitant]
     Active Substance: LISINOPRIL
  6. CORTEF [Concomitant]
     Active Substance: HYDROCORTISONE
  7. Calcium with d3 [Concomitant]
  8. ZOFRAN [Concomitant]
     Active Substance: ONDANSETRON HYDROCHLORIDE
     Dosage: 1.34 MG,CAPSULE PO QD FOR 21 DAYS ON 7D OFF
     Route: 048
     Dates: start: 20210801

REACTIONS (1)
  - Dysphonia [Unknown]
